FAERS Safety Report 12554189 (Version 1)
Quarter: 2016Q3

REPORT INFORMATION
  Report Type: Spontaneous
  Country: US (occurrence: US)
  Receive Date: 20160713
  Receipt Date: 20160713
  Transmission Date: 20161109
  Serious: Yes (Hospitalization, Other)
  Sender: FDA-Public Use
  Company Number: US-DSJP-DSU-2016-121506

PATIENT

DRUGS (4)
  1. BENICAR HCT [Suspect]
     Active Substance: HYDROCHLOROTHIAZIDE\OLMESARTAN MEDOXOMIL
     Dosage: 40MG/12.5MG HALF TABLET, QD
     Route: 048
  2. BENICAR [Suspect]
     Active Substance: OLMESARTAN MEDOXOMIL
     Indication: HYPERTENSION
     Dosage: 20 MG, QD
     Route: 048
     Dates: start: 20050519, end: 201308
  3. BENICAR HCT [Suspect]
     Active Substance: HYDROCHLOROTHIAZIDE\OLMESARTAN MEDOXOMIL
     Dosage: 20MG/12.5MG,, QD
     Route: 048
     Dates: start: 20050519, end: 201308
  4. BENICAR HCT [Suspect]
     Active Substance: HYDROCHLOROTHIAZIDE\OLMESARTAN MEDOXOMIL
     Indication: HYPERTENSION
     Dosage: 40MG/25MG, UNK
     Route: 048
     Dates: start: 20050519, end: 201308

REACTIONS (13)
  - Crohn^s disease [Not Recovered/Not Resolved]
  - Malabsorption [Recovered/Resolved]
  - Depression [Unknown]
  - Haemorrhoids [Unknown]
  - Wrong technique in product usage process [Unknown]
  - Proctitis ulcerative [Recovered/Resolved]
  - Gastrooesophageal reflux disease [Unknown]
  - Colitis ulcerative [Recovering/Resolving]
  - Haematemesis [Unknown]
  - Pancreatitis chronic [Unknown]
  - Hepatobiliary scan abnormal [Recovered/Resolved]
  - Helicobacter gastritis [Recovered/Resolved]
  - Polyp [Unknown]

NARRATIVE: CASE EVENT DATE: 2007
